FAERS Safety Report 4417623-6 (Version None)
Quarter: 2004Q2

REPORT INFORMATION
  Report Type: 
  Country: None (occurrence: None)
  Receive Date: 20040625
  Receipt Date: 20040511
  Transmission Date: 20050107
  Serious: Yes (Hospitalization)
  Sender: FDA-Public Use
  Company Number: 206457

PATIENT
  Age: 48 Year
  Sex: Male

DRUGS (9)
  1. AVASTIN [Suspect]
     Indication: PANCREATIC CARCINOMA
     Dosage: 347.7 MG, Q2W; INTRAVENOUS
     Route: 042
     Dates: start: 20040430
  2. FUDR [Concomitant]
  3. LEUCOVORIN CALCIUM [Concomitant]
  4. ATIVA (LORAZEPAM) [Concomitant]
  5. MORPHINE SULFATE [Concomitant]
  6. ESTRAZOLAM [Concomitant]
  7. COMPAZINE [Concomitant]
  8. LEXAPRO [Concomitant]
  9. COUMADIN [Concomitant]

REACTIONS (1)
  - IMPAIRED HEALING [None]
